FAERS Safety Report 11181440 (Version 1)
Quarter: 2015Q2

REPORT INFORMATION
  Report Type: Spontaneous
  Country: US (occurrence: US)
  Receive Date: 20150611
  Receipt Date: 20150611
  Transmission Date: 20150821
  Serious: No
  Sender: FDA-Public Use
  Company Number: US-ASTELLAS-2015US012020

PATIENT
  Age: 80 Year
  Sex: Male

DRUGS (1)
  1. XTANDI [Suspect]
     Active Substance: ENZALUTAMIDE
     Indication: PROSTATE CANCER
     Dosage: 4 DF (4 CAPSULES), ONCE DAILY
     Route: 048
     Dates: start: 20150212

REACTIONS (9)
  - Hypoaesthesia [Unknown]
  - Lethargy [Unknown]
  - Nail disorder [Unknown]
  - Depression [Unknown]
  - Peripheral swelling [Unknown]
  - Diarrhoea [Unknown]
  - Paraesthesia [Unknown]
  - Dry skin [Unknown]
  - Fall [Unknown]

NARRATIVE: CASE EVENT DATE: 20150409
